FAERS Safety Report 8184965-0 (Version None)
Quarter: 2012Q1

REPORT INFORMATION
  Report Type: 
  Country: None (occurrence: None)
  Receive Date: 20120305
  Receipt Date: 20120229
  Transmission Date: 20120608
  Serious: Yes (Hospitalization)
  Sender: FDA-Public Use
  Company Number: CH-GLAXOSMITHKLINE-B0785026A

PATIENT
  Age: 73 Year
  Sex: Female

DRUGS (3)
  1. ARIXTRA [Suspect]
     Indication: PERIPHERAL EMBOLISM
     Dosage: 7.5MG PER DAY
     Route: 058
     Dates: start: 20111006, end: 20111013
  2. VOLTAREN [Concomitant]
  3. ACETAMINOPHEN [Concomitant]

REACTIONS (2)
  - CONTUSION [None]
  - HAEMORRHAGIC ANAEMIA [None]
